FAERS Safety Report 13052279 (Version 1)
Quarter: 2016Q4

REPORT INFORMATION
  Report Type: Spontaneous
  Country: DE (occurrence: DE)
  Receive Date: 20161221
  Receipt Date: 20161221
  Transmission Date: 20170207
  Serious: Yes (Congenital Anomaly)
  Sender: FDA-Public Use
  Company Number: DE-TEVA-720544GER

PATIENT
  Age: 1 Day
  Sex: Male
  Weight: 3.49 kg

DRUGS (9)
  1. TAVOR (LORAZEPAM) [Concomitant]
     Active Substance: LORAZEPAM
     Indication: ANXIETY DISORDER
     Dosage: 1 MG/DAY MAXIMUM ON DEMAND; 8 TIMES BETWEEN WEEK 12 1/7 AND WEEK 33
     Route: 064
     Dates: start: 20151230, end: 20160524
  2. SERTRALINE [Suspect]
     Active Substance: SERTRALINE HYDROCHLORIDE
     Indication: ANXIETY DISORDER
     Dosage: 100 MILLIGRAM DAILY;
     Route: 064
     Dates: start: 20151006, end: 20160714
  3. UTROGESTAN [Suspect]
     Active Substance: PROGESTERONE
     Indication: ASSISTED FERTILISATION
     Dosage: 1200 MILLIGRAM DAILY;
     Route: 064
  4. PREDNISONE. [Concomitant]
     Active Substance: PREDNISONE
     Indication: ASSISTED FERTILISATION
     Dosage: 5 MILLIGRAM DAILY;
     Route: 064
  5. MERIESTRA [Suspect]
     Active Substance: ESTRADIOL VALERATE
     Indication: ASSISTED FERTILISATION
     Dosage: 6 MILLIGRAM DAILY;
     Route: 064
  6. PARACETAMOL 500 [Concomitant]
     Active Substance: ACETAMINOPHEN
     Indication: HEADACHE
     Dosage: 500 MG/DAY; 3 TIMES (IN WEEK 17, 18, 22)
     Route: 064
  7. ORTHOMOL NATAL [Concomitant]
     Indication: PROPHYLAXIS OF NEURAL TUBE DEFECT
     Route: 064
     Dates: start: 20151006, end: 20160714
  8. ADIRO [Concomitant]
     Active Substance: ASPIRIN
     Indication: ASSISTED FERTILISATION
     Dosage: 100 MILLIGRAM DAILY;
     Route: 064
  9. CLEXANE [Concomitant]
     Active Substance: ENOXAPARIN SODIUM
     Indication: ASSISTED FERTILISATION
     Dosage: 40 MILLIGRAM DAILY;
     Route: 064

REACTIONS (3)
  - Hypospadias [Not Recovered/Not Resolved]
  - Congenital skin dimples [Not Recovered/Not Resolved]
  - Foetal exposure during pregnancy [Unknown]

NARRATIVE: CASE EVENT DATE: 20160714
